FAERS Safety Report 15942859 (Version 3)
Quarter: 2019Q1

REPORT INFORMATION
  Report Type: Report from Study
  Country: SI (occurrence: SI)
  Receive Date: 20190209
  Receipt Date: 20190320
  Transmission Date: 20190417
  Serious: Yes (Life-Threatening, Hospitalization, Other)
  Sender: FDA-Public Use
  Company Number: SI-ACCORD-106336

PATIENT
  Age: 84 Year
  Sex: Male
  Weight: 76 kg

DRUGS (13)
  1. GRANISETRON [Concomitant]
     Active Substance: GRANISETRON
     Indication: NAUSEA
     Dosage: DOSAGE FORM: UNSPECIFIED,RECEIVED ON 04-NOV-2015 TO 30-MAR-2016
     Route: 058
     Dates: start: 20141215, end: 20141216
  2. ZYTIGA [Suspect]
     Active Substance: ABIRATERONE ACETATE
     Indication: PROSTATE CANCER METASTATIC
     Route: 048
     Dates: start: 20140922, end: 20160930
  3. SUMAMED [Concomitant]
     Active Substance: AZITHROMYCIN ANHYDROUS
     Indication: INFECTION
     Dosage: DOSAGE FORM: UNSPECIFIED
     Route: 042
     Dates: start: 20141207, end: 20141209
  4. ENZALUTAMIDE [Concomitant]
     Active Substance: ENZALUTAMIDE
     Indication: PROSTATE CANCER METASTATIC
     Dosage: DOSAGE FORM: UNSPECIFIED
     Route: 048
     Dates: start: 20151104, end: 20160330
  5. ANALGIN [Concomitant]
     Indication: ABDOMINAL PAIN
     Dosage: DOSAGE FORM: UNSPECIFIED
     Route: 048
     Dates: start: 20141205
  6. MEDROL [Suspect]
     Active Substance: METHYLPREDNISOLONE
     Indication: PROSTATE CANCER METASTATIC
     Route: 048
     Dates: start: 20140922, end: 201412
  7. LEUPRORELIN/LEUPRORELIN ACETATE [Suspect]
     Active Substance: LEUPROLIDE ACETATE
     Indication: PROSTATE CANCER METASTATIC
     Dosage: DOSAGE FORM: UNSPECIFIED
     Route: 058
     Dates: start: 200811
  8. PANTOPRAZOLE [Concomitant]
     Active Substance: PANTOPRAZOLE
     Indication: PROPHYLAXIS AGAINST GASTROINTESTINAL ULCER
     Dosage: DOSAGE FORM: UNSPECIFIED
     Route: 048
     Dates: start: 20141211, end: 20141216
  9. FRAGMIN [Concomitant]
     Active Substance: DALTEPARIN SODIUM
     Indication: THROMBOSIS PROPHYLAXIS
     Dosage: DOSAGE FORM: UNSPECIFIED
     Route: 058
     Dates: start: 20141205
  10. ZOLEDRONIC ACID [Suspect]
     Active Substance: ZOLEDRONIC ACID
     Indication: PROSTATE CANCER METASTATIC
     Dosage: DOSAGE FORM: UNSPECIFIED,RECEIVED DURING 12-OCT-2008 TO 21-OCT-2015
     Route: 042
  11. ZALDIAR [Concomitant]
     Active Substance: ACETAMINOPHEN\TRAMADOL HYDROCHLORIDE
     Indication: ABDOMINAL PAIN
     Dosage: DOSAGE FORM: UNSPECIFIED
     Route: 048
     Dates: start: 20141212, end: 20141216
  12. PERFALGAN [Concomitant]
     Active Substance: ACETAMINOPHEN
     Indication: PYREXIA
     Dosage: DOSAGE FORM: UNSPECIFIED
     Route: 042
     Dates: start: 20141209, end: 20141216
  13. INVANZ [Concomitant]
     Active Substance: ERTAPENEM SODIUM
     Indication: INFECTION
     Dosage: DOSAGE FORM: UNSPECIFIED
     Route: 042
     Dates: start: 20141207, end: 20141210

REACTIONS (5)
  - Haematochezia [Recovered/Resolved]
  - Sepsis [Recovered/Resolved]
  - Gastrointestinal haemorrhage [Unknown]
  - Colorectal cancer [Recovering/Resolving]
  - Off label use [Unknown]

NARRATIVE: CASE EVENT DATE: 20141202
